FAERS Safety Report 21041056 (Version 3)
Quarter: 2022Q3

REPORT INFORMATION
  Report Type: Spontaneous
  Country: US (occurrence: US)
  Receive Date: 20220705
  Receipt Date: 20220822
  Transmission Date: 20221027
  Serious: No
  Sender: FDA-Public Use
  Company Number: US-JNJFOC-20220662831

PATIENT
  Sex: Male
  Weight: 106.8 kg

DRUGS (4)
  1. OPSUMIT [Suspect]
     Active Substance: MACITENTAN
     Indication: Product used for unknown indication
     Route: 048
     Dates: start: 20210917
  2. UPTRAVI [Suspect]
     Active Substance: SELEXIPAG
     Indication: Secondary hypertension
     Route: 048
  3. TROSPIUM [Suspect]
     Active Substance: TROSPIUM
     Indication: Product used for unknown indication
     Route: 065
  4. SILDENAFIL CITRATE [Concomitant]
     Active Substance: SILDENAFIL CITRATE

REACTIONS (5)
  - Urinary tract infection [Not Recovered/Not Resolved]
  - Bladder spasm [Unknown]
  - Hypersensitivity [Unknown]
  - Oral herpes [Unknown]
  - Sunburn [Unknown]
